FAERS Safety Report 4708774-7 (Version None)
Quarter: 2005Q3

REPORT INFORMATION
  Report Type: 
  Country: None (occurrence: None)
  Receive Date: 20050705
  Receipt Date: 20050621
  Transmission Date: 20060218
  Serious: Yes (Hospitalization)
  Sender: FDA-Public Use
  Company Number: 2005092357

PATIENT
  Age: 72 Year
  Sex: Male

DRUGS (5)
  1. PENICILLIN G PROCAINE [Suspect]
     Indication: ENDOCARDITIS
     Dosage: 5 ^MIE^ (3 TIMES DAILY),
  2. ASPIRIN [Suspect]
     Indication: ILL-DEFINED DISORDER
     Dosage: 75 MG (75 MG, 1 IN 1 D),
  3. GENTAMICIN [Suspect]
     Indication: ENDOCARDITIS
     Dosage: 180 MG (60 MG, 3 IN 1 D)
  4. TINZAPARIN SODIUM (HEPARIN-FRACTION, SODIUM SALT) [Suspect]
     Indication: ILL-DEFINED DISORDER
  5. WARFARIN SODIUM [Suspect]
     Indication: ILL-DEFINED DISORDER

REACTIONS (6)
  - BLOOD CREATININE INCREASED [None]
  - BLOOD UREA INCREASED [None]
  - COAGULATION TIME PROLONGED [None]
  - HAEMATURIA [None]
  - HAEMORRHAGE [None]
  - PLATELET AGGREGATION DECREASED [None]
